FAERS Safety Report 7869654-1 (Version None)
Quarter: 2011Q4

REPORT INFORMATION
  Report Type: 
  Country: None (occurrence: None)
  Receive Date: 20111028
  Receipt Date: 20111028
  Transmission Date: 20120403
  Serious: Yes (Other)
  Sender: FDA-Public Use
  Company Number: None

PATIENT
  Age: 60 Year
  Sex: Female
  Weight: 90 kg

DRUGS (1)
  1. NORVASC [Suspect]
     Indication: HYPERTENSION
     Dosage: 10MG DAILY ORAL
     Route: 048
     Dates: start: 20110103, end: 20110107

REACTIONS (4)
  - NAUSEA [None]
  - RASH [None]
  - PHARYNGEAL OEDEMA [None]
  - HEADACHE [None]
